FAERS Safety Report 9709387 (Version 1)
Quarter: 2013Q4

REPORT INFORMATION
  Report Type: Report from Study
  Country: US (occurrence: US)
  Receive Date: 20131126
  Receipt Date: 20131126
  Transmission Date: 20140711
  Serious: No
  Sender: FDA-Public Use
  Company Number: US-009507513-1311USA008364

PATIENT
  Age: 51 Year
  Sex: Male

DRUGS (4)
  1. VICTRELIS [Suspect]
     Indication: HEPATITIS C
     Dosage: 200MG, 4 CAPSULES, 1 IN 8 HR
     Route: 048
  2. PEGASYS [Suspect]
     Indication: HEPATITIS C
     Dosage: 90 MICROGRAMS 1 IN 1 WEEK
     Route: 058
  3. REBETOL [Suspect]
     Indication: HEPATITIS C
     Dosage: 2 TABLETS (200 MG, 1 IN 12 HR
     Route: 048
  4. NYSTATIN [Concomitant]
     Dosage: 10000U/ML 5ML (4 IN 1 D)

REACTIONS (16)
  - Stomatitis [Unknown]
  - White blood cell count decreased [Unknown]
  - Mean cell haemoglobin concentration decreased [Unknown]
  - Eosinophil count increased [Unknown]
  - Lymphocyte count increased [Unknown]
  - Monocyte count increased [Unknown]
  - Haematocrit decreased [Unknown]
  - Mean platelet volume increased [Unknown]
  - Lip ulceration [Unknown]
  - Aphthous stomatitis [Unknown]
  - Platelet count decreased [Unknown]
  - Red blood cell count decreased [Unknown]
  - Haemoglobin decreased [Unknown]
  - Neutrophil count decreased [Unknown]
  - Nausea [Recovered/Resolved]
  - Vomiting [Recovered/Resolved]
